FAERS Safety Report 12065108 (Version 2)
Quarter: 2016Q1

REPORT INFORMATION
  Report Type: Report from Study
  Country: US (occurrence: US)
  Receive Date: 20160210
  Receipt Date: 20160219
  Transmission Date: 20160526
  Serious: Yes (Hospitalization)
  Sender: FDA-Public Use
  Company Number: US-GILEAD-2016-0197323

PATIENT
  Age: 55 Year
  Sex: Male

DRUGS (2)
  1. IDELALISIB [Suspect]
     Active Substance: IDELALISIB
     Indication: LYMPHOMA
  2. IDELALISIB [Suspect]
     Active Substance: IDELALISIB
     Indication: BILE DUCT CANCER
     Dosage: 150 MG, BID
     Route: 048

REACTIONS (4)
  - Hyperhidrosis [Unknown]
  - Tremor [Unknown]
  - Vomiting [Unknown]
  - Pyrexia [Unknown]
